FAERS Safety Report 16651183 (Version 2)
Quarter: 2019Q3

REPORT INFORMATION
  Report Type: Spontaneous
  Country: JP (occurrence: JP)
  Receive Date: 20190731
  Receipt Date: 20190812
  Transmission Date: 20191004
  Serious: Yes (Other)
  Sender: FDA-Public Use
  Company Number: JP-009507513-1907JPN015836

PATIENT
  Age: 27 Year
  Sex: Female

DRUGS (7)
  1. LEVOFLOXACIN. [Concomitant]
     Active Substance: LEVOFLOXACIN
     Indication: PROPHYLAXIS
     Dosage: UNK UNK, UNKNOWN FREQ. (DOSAGE FORM: PER ORAL NOS)
     Route: 048
  2. ACLACINON [Concomitant]
     Active Substance: ACLARUBICIN HYDROCHLORIDE
     Indication: ACUTE MYELOID LEUKAEMIA
     Dosage: UNK UNK, UNKNOWN FREQ.
     Route: 041
  3. METRONIDAZOLE. [Concomitant]
     Active Substance: METRONIDAZOLE
     Indication: CLOSTRIDIUM DIFFICILE INFECTION
     Dosage: UNK UNK, UNKNOWN FREQ. (DOSAGE FORM: PER ORAL NOS)
     Route: 048
  4. FIDAXOMICIN [Suspect]
     Active Substance: FIDAXOMICIN
     Indication: CLOSTRIDIUM DIFFICILE COLITIS
     Dosage: 400 MILLIGRAM PER DAY
     Route: 048
  5. ITRIZOLE [Concomitant]
     Active Substance: ITRACONAZOLE
     Indication: PROPHYLAXIS
     Dosage: UNK UNK, UNKNOWN FREQ. (DOSAGE FORM: PER ORAL NOS)
     Route: 048
  6. CYTARABINE. [Concomitant]
     Active Substance: CYTARABINE
     Indication: ACUTE MYELOID LEUKAEMIA
     Dosage: UNK UNK, UNKNOWN FREQ.
     Route: 065
  7. VANCOMYCIN HYDROCHLORIDE. [Concomitant]
     Active Substance: VANCOMYCIN HYDROCHLORIDE
     Indication: CLOSTRIDIUM DIFFICILE INFECTION
     Dosage: UNK UNK, UNKNOWN FREQ. (DOSAGE FORM: PER ORAL NOS)
     Route: 048

REACTIONS (1)
  - Cytopenia [Unknown]
